FAERS Safety Report 5897041-4 (Version None)
Quarter: 2008Q3

REPORT INFORMATION
  Report Type: 
  Country: None (occurrence: None)
  Receive Date: 20080924
  Receipt Date: 20080910
  Transmission Date: 20090109
  Serious: Yes (Death, Other)
  Sender: FDA-Public Use
  Company Number: JP-ABBOTT-08P-087-0477592-00

PATIENT
  Age: 69 Year
  Sex: Male

DRUGS (6)
  1. LEUPROLIDE ACETATE [Suspect]
     Indication: PROSTATE CANCER STAGE IV
     Route: 058
     Dates: start: 20070124, end: 20070420
  2. LEUPROLIDE ACETATE [Suspect]
     Dates: start: 20061122, end: 20061220
  3. BICALUTAMIDE [Concomitant]
     Indication: PROSTATE CANCER STAGE IV
     Route: 048
     Dates: start: 20070420, end: 20070425
  4. FLUTAMIDE [Concomitant]
     Indication: PROSTATE CANCER STAGE IV
     Route: 048
     Dates: start: 20061126, end: 20070419
  5. OXYCODONE HCL [Concomitant]
     Indication: PAIN
     Route: 048
     Dates: end: 20070425
  6. ZOLPIDEM TARTRATE [Concomitant]
     Indication: INSOMNIA
     Route: 048
     Dates: end: 20070425

REACTIONS (3)
  - CARDIAC ARREST [None]
  - PROSTATE CANCER [None]
  - TACHYCARDIA [None]
